FAERS Safety Report 9190070 (Version 1)
Quarter: 2013Q1

REPORT INFORMATION
  Report Type: Spontaneous
  Country: US (occurrence: US)
  Receive Date: 20130326
  Receipt Date: 20130326
  Transmission Date: 20140127
  Serious: No
  Sender: FDA-Public Use
  Company Number: US-PFIZER INC-2013093703

PATIENT
  Age: 51 Year
  Sex: Male
  Weight: 94.33 kg

DRUGS (3)
  1. VIAGRA [Suspect]
     Indication: ERECTILE DYSFUNCTION
     Dosage: UNK
     Route: 048
     Dates: start: 201302
  2. VIAGRA [Suspect]
     Dosage: UNK, TOOK A QUARTER OF THE TABLET
     Route: 048
     Dates: start: 201302
  3. ENALAPRIL [Concomitant]
     Indication: HYPERTENSION
     Dosage: 5 MG, 1X/DAY
     Dates: start: 2012

REACTIONS (3)
  - Drug ineffective [Unknown]
  - Blood pressure decreased [Unknown]
  - Nausea [Unknown]
